FAERS Safety Report 8522479-6 (Version None)
Quarter: 2012Q3

REPORT INFORMATION
  Report Type: 
  Country: None (occurrence: None)
  Receive Date: 20120719
  Receipt Date: 20120709
  Transmission Date: 20120928
  Serious: Yes (Hospitalization)
  Sender: FDA-Public Use
  Company Number: US-ELI_LILLY_AND_COMPANY-US201207002959

PATIENT
  Sex: Female

DRUGS (3)
  1. LANTUS [Concomitant]
     Indication: TYPE 2 DIABETES MELLITUS
     Dosage: 10 U, QD
     Route: 058
     Dates: start: 20100101
  2. HUMALOG [Suspect]
     Dosage: UNK
  3. METFORMIN HYDROCHLORIDE [Concomitant]
     Dosage: UNK
     Dates: end: 20120101

REACTIONS (3)
  - HIP FRACTURE [None]
  - BLOOD GLUCOSE DECREASED [None]
  - RETINOPATHY [None]
